FAERS Safety Report 8474486-X (Version None)
Quarter: 2012Q2

REPORT INFORMATION
  Report Type: 
  Country: None (occurrence: None)
  Receive Date: 20120628
  Receipt Date: 20120625
  Transmission Date: 20120825
  Serious: Yes (Other)
  Sender: FDA-Public Use
  Company Number: PHEH2012US012049

PATIENT

DRUGS (1)
  1. DIOVAN HCT [Suspect]
     Dosage: 1 DF (320 MG VALS AND 25 MG HYDRO), UNK

REACTIONS (2)
  - DIABETES MELLITUS [None]
  - SKIN WRINKLING [None]
